FAERS Safety Report 23132224 (Version 1)
Quarter: 2023Q4

REPORT INFORMATION
  Report Type: Spontaneous
  Country: US (occurrence: US)
  Receive Date: 20231101
  Receipt Date: 20231101
  Transmission Date: 20240110
  Serious: Yes (Other)
  Sender: FDA-Public Use
  Company Number: US-MLMSERVICE-20231018-4606848-1

PATIENT

DRUGS (4)
  1. TACROLIMUS [Suspect]
     Active Substance: TACROLIMUS
     Indication: Immunosuppressant drug therapy
     Dosage: 1 MILLIGRAM
     Route: 065
     Dates: start: 2015
  2. PREDNISONE [Concomitant]
     Active Substance: PREDNISONE
     Indication: Immunosuppressant drug therapy
     Dosage: 5 MILLIGRAM, OD
     Route: 065
     Dates: start: 201511
  3. PREDNISONE [Concomitant]
     Active Substance: PREDNISONE
     Dosage: UNK (TAPER)
     Route: 065
     Dates: start: 2015, end: 2015
  4. MYCOPHENOLATE MOFETIL [Concomitant]
     Active Substance: MYCOPHENOLATE MOFETIL
     Indication: Immunosuppressant drug therapy
     Dosage: 500 MILLIGRAM, BID
     Route: 065

REACTIONS (4)
  - Lymphadenopathy [Recovered/Resolved]
  - Squamous cell carcinoma of skin [Recovered/Resolved]
  - Metastases to lymph nodes [Recovered/Resolved]
  - Metastatic squamous cell carcinoma [Recovered/Resolved]

NARRATIVE: CASE EVENT DATE: 20180201
